FAERS Safety Report 11213188 (Version 1)
Quarter: 2015Q2

REPORT INFORMATION
  Report Type: Spontaneous
  Country: CH (occurrence: CH)
  Receive Date: 20150623
  Receipt Date: 20150623
  Transmission Date: 20150821
  Serious: Yes (Disabling, Other)
  Sender: FDA-Public Use
  Company Number: CH-TEVA-570343ISR

PATIENT
  Age: 19 Year
  Sex: Female
  Weight: 60 kg

DRUGS (2)
  1. ISOTRETINOIN-MEPHA [Suspect]
     Active Substance: ISOTRETINOIN
     Indication: ACNE
     Dosage: 1 DOSAGE FORMS DAILY; 5 TO 10 MG PER DAY
     Route: 048
     Dates: start: 20140613, end: 20150428
  2. IMPLANON [Concomitant]
     Active Substance: ETONOGESTREL
     Route: 065
     Dates: start: 2013

REACTIONS (1)
  - Postural tremor [Not Recovered/Not Resolved]

NARRATIVE: CASE EVENT DATE: 201409
